FAERS Safety Report 5053239-9 (Version None)
Quarter: 2006Q3

REPORT INFORMATION
  Report Type: 
  Country: None (occurrence: None)
  Receive Date: 20060712
  Receipt Date: 20060623
  Transmission Date: 20061208
  Serious: Yes (Other)
  Sender: FDA-Public Use
  Company Number: US200605006401

PATIENT
  Age: 51 Year
  Sex: Female

DRUGS (3)
  1. HUMALOG [Suspect]
     Indication: DIABETES MELLITUS
     Dosage: AS NEEDED,
     Dates: start: 19990401
  2. HUMALOG [Suspect]
     Indication: DIABETES MELLITUS
     Dosage: AS NEEDED,
     Dates: start: 19990401
  3. LANTUS [Concomitant]

REACTIONS (3)
  - BLOOD GLUCOSE INCREASED [None]
  - PHARMACEUTICAL PRODUCT COMPLAINT [None]
  - UTERINE LEIOMYOMA [None]
